FAERS Safety Report 24887165 (Version 1)
Quarter: 2025Q1

REPORT INFORMATION
  Report Type: Report from Study
  Country: ES (occurrence: ES)
  Receive Date: 20250127
  Receipt Date: 20250127
  Transmission Date: 20250408
  Serious: Yes (Death, Other)
  Sender: AUROBINDO
  Company Number: ES-ARISTO PHARMA-DRON202412261

PATIENT
  Age: 78 Year
  Sex: Female

DRUGS (1)
  1. DRONEDARONE [Suspect]
     Active Substance: DRONEDARONE
     Indication: Product used for unknown indication
     Route: 065

REACTIONS (7)
  - Hepatic encephalopathy [Fatal]
  - Acute hepatic failure [Fatal]
  - Haematemesis [Fatal]
  - Ascites [Fatal]
  - Asthenia [Fatal]
  - Jaundice [Fatal]
  - Chromaturia [Fatal]
